FAERS Safety Report 11905855 (Version 2)
Quarter: 2020Q3

REPORT INFORMATION
  Report Type: Spontaneous
  Country: GB (occurrence: GB)
  Receive Date: 20160111
  Receipt Date: 20160121
  Transmission Date: 20201104
  Serious: Yes (Other)
  Sender: FDA-Public Use
  Company Number: GB-ROCHE-1691027

PATIENT
  Age: 54 Year
  Sex: Male

DRUGS (4)
  1. CIPROFLOXACIN. [Suspect]
     Active Substance: CIPROFLOXACIN
     Indication: PRODUCT USED FOR UNKNOWN INDICATION
     Route: 065
  2. ALENDRONIC ACID [Suspect]
     Active Substance: ALENDRONIC ACID
     Indication: PRODUCT USED FOR UNKNOWN INDICATION
     Route: 065
  3. IBANDRONIC ACID. [Suspect]
     Active Substance: IBANDRONIC ACID
     Indication: PRODUCT USED FOR UNKNOWN INDICATION
     Route: 065
  4. PREDNISOLONE. [Suspect]
     Active Substance: PREDNISOLONE
     Indication: BRONCHOPULMONARY ASPERGILLOSIS ALLERGIC
     Route: 065

REACTIONS (16)
  - Asthenia [Unknown]
  - Callus formation delayed [Unknown]
  - Foot fracture [Unknown]
  - Body mass index increased [Unknown]
  - Acute respiratory failure [Unknown]
  - Respiratory disorder [Unknown]
  - Pain [Unknown]
  - Biopsy bone abnormal [Unknown]
  - Tendonitis [Unknown]
  - Bone density decreased [Recovered/Resolved]
  - Rib fracture [Unknown]
  - Atypical fracture [Unknown]
  - Fall [Unknown]
  - Groin pain [Unknown]
  - Cystic fibrosis [Unknown]
  - Weight increased [Unknown]
